FAERS Safety Report 7908870-7 (Version None)
Quarter: 2011Q4

REPORT INFORMATION
  Report Type: 
  Country: None (occurrence: None)
  Receive Date: 20111111
  Receipt Date: 20111103
  Transmission Date: 20120403
  Serious: Yes (Other)
  Sender: FDA-Public Use
  Company Number: US-US-EMD SERONO, INC.-7093979

PATIENT
  Sex: Female

DRUGS (2)
  1. REBIF [Suspect]
     Indication: PRODUCT USED FOR UNKNOWN INDICATION
     Route: 058
     Dates: start: 20050503
  2. MIRALAX [Concomitant]
     Indication: CONSTIPATION

REACTIONS (6)
  - DIVERTICULITIS [None]
  - ILEITIS [None]
  - HYPOTHYROIDISM [None]
  - HYPERCHOLESTEROLAEMIA [None]
  - WHITE BLOOD CELL COUNT DECREASED [None]
  - HAEMORRHOIDS [None]
